FAERS Safety Report 9366771 (Version 1)
Quarter: 2013Q2

REPORT INFORMATION
  Report Type: Spontaneous
  Country: FR (occurrence: None)
  Receive Date: 20130620
  Receipt Date: 20130620
  Transmission Date: 20140414
  Serious: Yes (Hospitalization, Other)
  Sender: FDA-Public Use
  Company Number: AUR-APL-2013-04974

PATIENT
  Age: 58 Year
  Sex: Male

DRUGS (1)
  1. METFORMIN (METFORMIN) [Suspect]
     Indication: TYPE 2 DIABETES MELLITUS

REACTIONS (8)
  - Loss of consciousness [None]
  - Haemodynamic instability [None]
  - Lactic acidosis [None]
  - Renal impairment [None]
  - Hepatic function abnormal [None]
  - Incorrect dose administered [None]
  - Aspartate aminotransferase increased [None]
  - Alanine aminotransferase increased [None]
